FAERS Safety Report 16735654 (Version 4)
Quarter: 2025Q3

REPORT INFORMATION
  Report Type: Spontaneous
  Country: EU (occurrence: EU)
  Receive Date: 20190823
  Receipt Date: 20250821
  Transmission Date: 20251020
  Serious: Yes (Other)
  Sender: MYLAN
  Company Number: EU-UCBSA-2019011561

PATIENT
  Age: 3 Year
  Sex: Female

DRUGS (43)
  1. LEVETIRACETAM [Suspect]
     Active Substance: LEVETIRACETAM
     Indication: Myoclonic epilepsy
  2. LEVETIRACETAM [Suspect]
     Active Substance: LEVETIRACETAM
     Route: 065
  3. LEVETIRACETAM [Suspect]
     Active Substance: LEVETIRACETAM
     Route: 065
  4. LEVETIRACETAM [Suspect]
     Active Substance: LEVETIRACETAM
  5. TOPIRAMATE [Suspect]
     Active Substance: TOPIRAMATE
     Indication: Myoclonic epilepsy
  6. TOPIRAMATE [Suspect]
     Active Substance: TOPIRAMATE
     Indication: Epilepsy
     Route: 065
  7. TOPIRAMATE [Suspect]
     Active Substance: TOPIRAMATE
     Route: 065
  8. TOPIRAMATE [Suspect]
     Active Substance: TOPIRAMATE
  9. ZONISAMIDE [Suspect]
     Active Substance: ZONISAMIDE
     Indication: Myoclonic epilepsy
  10. ZONISAMIDE [Suspect]
     Active Substance: ZONISAMIDE
     Indication: Epilepsy
     Route: 065
  11. ZONISAMIDE [Suspect]
     Active Substance: ZONISAMIDE
     Route: 065
  12. ZONISAMIDE [Suspect]
     Active Substance: ZONISAMIDE
  13. PHENYTOIN SODIUM [Suspect]
     Active Substance: PHENYTOIN SODIUM
     Indication: Epilepsy
  14. PHENYTOIN SODIUM [Suspect]
     Active Substance: PHENYTOIN SODIUM
     Indication: Myoclonic epilepsy
     Route: 065
  15. PHENYTOIN SODIUM [Suspect]
     Active Substance: PHENYTOIN SODIUM
     Route: 065
  16. PHENYTOIN SODIUM [Suspect]
     Active Substance: PHENYTOIN SODIUM
  17. VALPROIC ACID [Suspect]
     Active Substance: VALPROIC ACID
     Indication: Myoclonic epilepsy
  18. VALPROIC ACID [Suspect]
     Active Substance: VALPROIC ACID
     Route: 065
  19. VALPROIC ACID [Suspect]
     Active Substance: VALPROIC ACID
     Route: 065
  20. VALPROIC ACID [Suspect]
     Active Substance: VALPROIC ACID
  21. PERAMPANEL [Suspect]
     Active Substance: PERAMPANEL
     Indication: Epilepsy
     Dosage: 2 MILLIGRAM, QD
     Route: 065
  22. PERAMPANEL [Suspect]
     Active Substance: PERAMPANEL
     Indication: Myoclonic epilepsy
     Dosage: 2 MILLIGRAM, QD
  23. PERAMPANEL [Suspect]
     Active Substance: PERAMPANEL
     Dosage: 2 MILLIGRAM, QD
  24. PERAMPANEL [Suspect]
     Active Substance: PERAMPANEL
     Dosage: 2 MILLIGRAM, QD
     Route: 065
  25. PERAMPANEL [Suspect]
     Active Substance: PERAMPANEL
     Dosage: 4 MILLIGRAM, QD (MAXIMUM DOSE OF 4MG/DAY)
     Route: 065
  26. PERAMPANEL [Suspect]
     Active Substance: PERAMPANEL
     Dosage: 4 MILLIGRAM, QD (MAXIMUM DOSE OF 4MG/DAY)
  27. PERAMPANEL [Suspect]
     Active Substance: PERAMPANEL
     Dosage: 4 MILLIGRAM, QD (MAXIMUM DOSE OF 4MG/DAY)
  28. PERAMPANEL [Suspect]
     Active Substance: PERAMPANEL
     Dosage: 4 MILLIGRAM, QD (MAXIMUM DOSE OF 4MG/DAY)
     Route: 065
  29. BRIVARACETAM [Suspect]
     Active Substance: BRIVARACETAM
     Indication: Epilepsy
  30. BRIVARACETAM [Suspect]
     Active Substance: BRIVARACETAM
     Indication: Myoclonic epilepsy
     Route: 065
  31. BRIVARACETAM [Suspect]
     Active Substance: BRIVARACETAM
     Route: 065
  32. BRIVARACETAM [Suspect]
     Active Substance: BRIVARACETAM
  33. LACOSAMIDE [Suspect]
     Active Substance: LACOSAMIDE
     Indication: Epilepsy
  34. LACOSAMIDE [Suspect]
     Active Substance: LACOSAMIDE
     Indication: Myoclonic epilepsy
     Route: 065
  35. LACOSAMIDE [Suspect]
     Active Substance: LACOSAMIDE
     Route: 065
  36. LACOSAMIDE [Suspect]
     Active Substance: LACOSAMIDE
  37. CLOBAZAM [Suspect]
     Active Substance: CLOBAZAM
     Indication: Epilepsy
     Route: 065
  38. CLOBAZAM [Suspect]
     Active Substance: CLOBAZAM
     Indication: Myoclonic epilepsy
  39. ETHOSUXIMIDE [Suspect]
     Active Substance: ETHOSUXIMIDE
     Indication: Epilepsy
  40. ETHOSUXIMIDE [Suspect]
     Active Substance: ETHOSUXIMIDE
     Indication: Myoclonic epilepsy
     Route: 065
  41. ETHOSUXIMIDE [Suspect]
     Active Substance: ETHOSUXIMIDE
     Route: 065
  42. ETHOSUXIMIDE [Suspect]
     Active Substance: ETHOSUXIMIDE
  43. PIRACETAM [Suspect]
     Active Substance: PIRACETAM
     Indication: Epilepsy

REACTIONS (5)
  - Petit mal epilepsy [Recovered/Resolved]
  - Excessive eye blinking [Unknown]
  - Hypokinesia [Unknown]
  - Status epilepticus [Recovering/Resolving]
  - Multiple-drug resistance [Unknown]
